FAERS Safety Report 4699119-X (Version None)
Quarter: 2005Q2

REPORT INFORMATION
  Report Type: 
  Country: None (occurrence: None)
  Receive Date: 20050624
  Receipt Date: 20050615
  Transmission Date: 20051028
  Serious: Yes (Other)
  Sender: FDA-Public Use
  Company Number: US-JNJFOC-20050604536

PATIENT
  Age: 54 Year
  Sex: Female

DRUGS (2)
  1. TRAMADOL HCL [Suspect]
     Indication: PAIN
     Route: 049
     Dates: start: 20050611, end: 20050612
  2. ATENOLOL [Concomitant]
     Indication: BLOOD PRESSURE
     Route: 049

REACTIONS (7)
  - BURNING SENSATION [None]
  - DYSPNOEA [None]
  - HEADACHE [None]
  - HYPERHIDROSIS [None]
  - LOSS OF CONSCIOUSNESS [None]
  - THROAT TIGHTNESS [None]
  - VISION BLURRED [None]
